FAERS Safety Report 14216789 (Version 2)
Quarter: 2017Q4

REPORT INFORMATION
  Report Type: Report from Study
  Country: US (occurrence: US)
  Receive Date: 20171122
  Receipt Date: 20171212
  Transmission Date: 20180321
  Serious: Yes (Hospitalization)
  Sender: FDA-Public Use
  Company Number: US-VIFOR (INTERNATIONAL) INC.-VIT-2017-12397

PATIENT
  Age: 69 Year
  Sex: Female

DRUGS (27)
  1. BYSTOLIC [Concomitant]
     Active Substance: NEBIVOLOL HYDROCHLORIDE
     Route: 048
     Dates: start: 20130623
  2. EFFEXOR [Concomitant]
     Active Substance: VENLAFAXINE HYDROCHLORIDE
     Route: 048
     Dates: start: 20170823
  3. GLUCAGON. [Concomitant]
     Active Substance: GLUCAGON
     Route: 030
  4. PNEUMOCOCCAL VACCINE POLYVALENT NOS [Concomitant]
     Active Substance: PNEUMOCOCCAL VACCINE POLYVALENT
  5. VELTASSA [Suspect]
     Active Substance: PATIROMER
     Indication: BLOOD POTASSIUM INCREASED
     Route: 048
     Dates: start: 20171006, end: 20171127
  6. SINGULAIR [Concomitant]
     Active Substance: MONTELUKAST SODIUM
     Route: 048
  7. TRESIBA [Concomitant]
     Active Substance: INSULIN DEGLUDEC
     Route: 058
  8. COQ 10 [Concomitant]
     Active Substance: UBIDECARENONE
     Route: 048
  9. INFLUENZA VACCINE [Concomitant]
     Active Substance: INFLUENZA VIRUS VACCINE
     Route: 030
  10. FEROSOL [Concomitant]
     Active Substance: IRON
     Route: 048
  11. TYLENOL [Concomitant]
     Active Substance: ACETAMINOPHEN
     Indication: PAIN
     Route: 048
  12. PROVENTIL [Concomitant]
     Active Substance: ALBUTEROL
  13. RANITIDINE. [Concomitant]
     Active Substance: RANITIDINE
     Route: 048
  14. VELTASSA [Suspect]
     Active Substance: PATIROMER
     Dates: start: 201711
  15. XANAX [Concomitant]
     Active Substance: ALPRAZOLAM
     Route: 048
     Dates: start: 20170824
  16. NEURONTIN [Concomitant]
     Active Substance: GABAPENTIN
  17. APRESOLINE HYDROCHLORIDE [Concomitant]
     Active Substance: HYDRALAZINE HYDROCHLORIDE
  18. CRESTOR [Concomitant]
     Active Substance: ROSUVASTATIN CALCIUM
     Route: 048
  19. GLUCOSE [Concomitant]
     Active Substance: DEXTROSE
     Dosage: 50 MG/ML
     Route: 042
  20. PORSIN [Concomitant]
     Dosage: 5000 UNIT/ML
     Route: 058
  21. ADVAIR HFA [Concomitant]
     Active Substance: FLUTICASONE PROPIONATE\SALMETEROL XINAFOATE
  22. HUMALOG [Concomitant]
     Active Substance: INSULIN LISPRO
     Route: 058
  23. HYZAAR [Concomitant]
     Active Substance: HYDROCHLOROTHIAZIDE\LOSARTAN POTASSIUM
     Route: 048
  24. NITROSTAT [Concomitant]
     Active Substance: NITROGLYCERIN
     Route: 060
  25. NOVOLOG [Concomitant]
     Active Substance: INSULIN ASPART
  26. ACETYLSALICYLIC ACID [Concomitant]
     Active Substance: ASPIRIN
     Route: 048
  27. LASIX [Concomitant]
     Active Substance: FUROSEMIDE

REACTIONS (8)
  - Chest pain [Unknown]
  - Peripheral swelling [Unknown]
  - Palpitations [Recovering/Resolving]
  - Pulmonary oedema [Recovered/Resolved]
  - Chest discomfort [Unknown]
  - Acute kidney injury [Unknown]
  - Dyspnoea [Recovering/Resolving]
  - Cardiac failure congestive [Recovered/Resolved]

NARRATIVE: CASE EVENT DATE: 201711
